FAERS Safety Report 4834840-1 (Version None)
Quarter: 2005Q4

REPORT INFORMATION
  Report Type: 
  Country: None (occurrence: None)
  Receive Date: 20051122
  Receipt Date: 20051117
  Transmission Date: 20060501
  Serious: Yes (Hospitalization)
  Sender: FDA-Public Use
  Company Number: US-JNJFOC-20051104809

PATIENT
  Sex: Female
  Weight: 71.67 kg

DRUGS (8)
  1. TYLENOL (CAPLET) [Suspect]
     Route: 048
  2. TYLENOL (CAPLET) [Suspect]
     Indication: DRUG USE FOR UNKNOWN INDICATION
     Dosage: 7800-12000MG
     Route: 048
  3. TIAGABINE HCL [Suspect]
  4. PLACEBO [Suspect]
  5. ORTHO NOVUM 2/50 21 TAB [Concomitant]
  6. VITAMIN [Concomitant]
  7. DIUREX [Concomitant]
  8. DIUREX [Concomitant]

REACTIONS (4)
  - ASTHENIA [None]
  - HEADACHE [None]
  - INTENTIONAL OVERDOSE [None]
  - SUICIDE ATTEMPT [None]
